FAERS Safety Report 7888929-3 (Version None)
Quarter: 2011Q4

REPORT INFORMATION
  Report Type: 
  Country: None (occurrence: None)
  Receive Date: 20111101
  Receipt Date: 20111017
  Transmission Date: 20120403
  Serious: Yes (Hospitalization)
  Sender: FDA-Public Use
  Company Number: JP-2011-10178

PATIENT
  Age: 76 Year
  Sex: Male
  Weight: 54.6 kg

DRUGS (17)
  1. SLOW-K [Concomitant]
  2. NIKORANMART (NICORANDIL) TABLET [Concomitant]
  3. RABEPRAZOLE SODIUM [Concomitant]
  4. UFT [Concomitant]
  5. AZUCURENIN S (SODIUM AZULENE SULFONATE_L-GLUTAMINE) [Concomitant]
  6. LEVOFLOXACIN [Concomitant]
  7. LENDORMIN D (BROTIZOLAM) [Concomitant]
  8. FUROSEMIDE (FUROSEMIDE) TABLET [Concomitant]
  9. DIART (AZOSEMIDE) TABLET [Concomitant]
  10. LOXOPROFEN (LOXOPROFEN) [Suspect]
     Indication: GASTROOESOPHAGEAL REFLUX DISEASE
     Dosage: 60 MG MILLIGRAM(S), PM, ORAL
     Route: 048
     Dates: start: 20110123, end: 20110123
  11. HYALEIN (HYALURONATE SODIUM) [Concomitant]
  12. GLYCYRON (DL-METHIONINE, GLYCINE, GLYCYRRHIZIC ACID) [Concomitant]
  13. ENALAPRIL MALEATE [Concomitant]
  14. LIVAT (ISOLEUCINE, LEUCINE, VALINE) [Concomitant]
  15. SALONPAS (SALONPAS) [Concomitant]
  16. OPC-41061 (TOLVAPTAN) TABLET [Suspect]
     Indication: HEPATIC CIRRHOSIS
     Dosage: 3.75 MG MILLIGRAM(S), DAILY DOSE, ORAL
     Route: 048
     Dates: start: 20110119, end: 20110125
  17. PIROLACTON (SPIRONOLACTONE) [Concomitant]

REACTIONS (14)
  - GASTROOESOPHAGEAL REFLUX DISEASE [None]
  - COLON ADENOMA [None]
  - HAEMOGLOBIN DECREASED [None]
  - NAUSEA [None]
  - GASTROINTESTINAL EROSION [None]
  - DEVICE DISLOCATION [None]
  - GASTRIC ULCER HAEMORRHAGE [None]
  - BLOOD PRESSURE DECREASED [None]
  - PLATELET COUNT DECREASED [None]
  - EMOTIONAL DISTRESS [None]
  - GASTROINTESTINAL ANGIODYSPLASIA HAEMORRHAGIC [None]
  - CONCOMITANT DISEASE AGGRAVATED [None]
  - ARRHYTHMIA [None]
  - HAEMORRHOIDS [None]
